FAERS Safety Report 6820088-8 (Version None)
Quarter: 2010Q3

REPORT INFORMATION
  Report Type: 
  Country: None (occurrence: None)
  Receive Date: 20100707
  Receipt Date: 20100628
  Transmission Date: 20110219
  Serious: Yes (Hospitalization)
  Sender: FDA-Public Use
  Company Number: B0664021A

PATIENT
  Age: 8 Year
  Sex: Female

DRUGS (1)
  1. LAMICTAL [Suspect]
     Indication: EPILEPSY
     Dosage: 50MG PER DAY
     Route: 048
     Dates: start: 20100501, end: 20100601

REACTIONS (5)
  - ANAPHYLACTIC REACTION [None]
  - MOUTH ULCERATION [None]
  - OCULAR HYPERAEMIA [None]
  - PYREXIA [None]
  - URTICARIA [None]
